FAERS Safety Report 8829210 (Version 2)
Quarter: 2013Q2

REPORT INFORMATION
  Report Type: Spontaneous
  Country: GB (occurrence: GB)
  Receive Date: 20121008
  Receipt Date: 20130419
  Transmission Date: 20140414
  Serious: Yes (Other)
  Sender: FDA-Public Use
  Company Number: PHHY2012GB086154

PATIENT
  Age: 86 Year
  Sex: Male

DRUGS (5)
  1. WARFARIN [Suspect]
     Indication: ATRIAL FIBRILLATION
  2. MICONAZOLE [Interacting]
     Indication: TONGUE ULCERATION
  3. BUMETANIDE [Concomitant]
  4. DIGOXIN [Concomitant]
  5. CHLORPHENAMINE [Concomitant]

REACTIONS (6)
  - Oral candidiasis [Recovered/Resolved]
  - Tongue ulceration [Recovered/Resolved]
  - Erythroplasia [Recovered/Resolved]
  - Leukoplakia oral [Recovered/Resolved]
  - International normalised ratio increased [Recovered/Resolved]
  - Drug interaction [Recovered/Resolved]
